FAERS Safety Report 21837096 (Version 1)
Quarter: 2023Q1

REPORT INFORMATION
  Report Type: Spontaneous
  Country: US (occurrence: US)
  Receive Date: 20230109
  Receipt Date: 20230109
  Transmission Date: 20230418
  Serious: No
  Sender: FDA-Public Use
  Company Number: US-BIOVITRUM-2023US00374

PATIENT
  Sex: Female
  Weight: 5 kg

DRUGS (6)
  1. SYNAGIS [Suspect]
     Active Substance: PALIVIZUMAB
     Indication: Premature baby
     Dates: start: 202211
  2. SYNAGIS [Suspect]
     Active Substance: PALIVIZUMAB
     Indication: Bronchopulmonary dysplasia
  3. AMOXICILLIN [Concomitant]
     Active Substance: AMOXICILLIN
     Dosage: 400 MG/5ML SUSP RECON
  4. IRON\VITAMINS [Concomitant]
     Active Substance: IRON\VITAMINS
  5. INFANTS IBUPROFEN [Concomitant]
     Active Substance: IBUPROFEN
  6. INFANTS TYLENOL [Concomitant]
     Active Substance: ACETAMINOPHEN

REACTIONS (3)
  - Cough [Recovering/Resolving]
  - Nasal congestion [Recovering/Resolving]
  - Ear infection [Recovering/Resolving]
